FAERS Safety Report 5062441-1 (Version None)
Quarter: 2006Q3

REPORT INFORMATION
  Report Type: 
  Country: None (occurrence: None)
  Receive Date: 20060721
  Receipt Date: 20060706
  Transmission Date: 20061208
  Serious: Yes (Hospitalization)
  Sender: FDA-Public Use
  Company Number: JP200604004047

PATIENT
  Age: 39 Year
  Sex: Male
  Weight: 63 kg

DRUGS (4)
  1. GEMZAR [Suspect]
     Indication: LUNG ADENOCARCINOMA STAGE III
     Dosage: SEE IMAGE
     Route: 042
     Dates: start: 20060217, end: 20060303
  2. GEMZAR [Suspect]
     Indication: LUNG ADENOCARCINOMA STAGE III
     Dosage: SEE IMAGE
     Route: 042
     Dates: start: 20060317, end: 20060331
  3. GEMZAR [Suspect]
     Indication: LUNG ADENOCARCINOMA STAGE III
     Dosage: SEE IMAGE
     Route: 042
     Dates: start: 20060414, end: 20060414
  4. CARBOPLATIN [Concomitant]

REACTIONS (1)
  - SUBCLAVIAN VEIN THROMBOSIS [None]
